FAERS Safety Report 8311809-6 (Version None)
Quarter: 2012Q2

REPORT INFORMATION
  Report Type: 
  Country: None (occurrence: None)
  Receive Date: 20120425
  Receipt Date: 20120417
  Transmission Date: 20120825
  Serious: Yes (Other)
  Sender: FDA-Public Use
  Company Number: ES-ABBOTT-12P-144-0926050-00

PATIENT
  Age: 24 Year
  Sex: Female
  Weight: 81 kg

DRUGS (5)
  1. HUMIRA [Suspect]
     Indication: CROHN'S DISEASE
     Route: 058
     Dates: start: 20120326, end: 20120326
  2. PREDNISONE [Concomitant]
     Indication: CROHN'S DISEASE
     Route: 048
     Dates: start: 20120326, end: 20120402
  3. NATECAL D [Concomitant]
     Indication: CROHN'S DISEASE
     Dosage: 1-1500MG/400UI TABLET EVERY 12 HOURS
     Route: 048
     Dates: start: 20120223
  4. HUMIRA [Suspect]
     Route: 058
     Dates: start: 20120409, end: 20120409
  5. PREDNISONE [Concomitant]
     Route: 048
     Dates: start: 20120403

REACTIONS (2)
  - RASH PAPULAR [None]
  - SKIN BURNING SENSATION [None]
